FAERS Safety Report 8621531-4 (Version None)
Quarter: 2012Q3

REPORT INFORMATION
  Report Type: 
  Country: None (occurrence: None)
  Receive Date: 20120824
  Receipt Date: 20120817
  Transmission Date: 20120928
  Serious: Yes (Other)
  Sender: FDA-Public Use
  Company Number: JP-009507513-1205USA00478

PATIENT

DRUGS (9)
  1. TAMSULOSIN HCL [Concomitant]
     Dosage: 1 DF, QD
     Route: 048
     Dates: start: 20090401
  2. ALDACTONE [Concomitant]
     Dosage: 50 MG, QD
     Route: 048
  3. GLYBURIDE [Interacting]
     Indication: DIABETES MELLITUS
     Dosage: 2.5 MG, QD
     Route: 048
     Dates: start: 20001112, end: 20120420
  4. AMLODIPINE BESYLATE [Concomitant]
     Dosage: 2.5 MG, QD
     Route: 048
     Dates: start: 20060802
  5. MENESIT TABLETS - 100 [Suspect]
     Indication: PARKINSONISM
     Dosage: 100 MG, QD
     Route: 048
     Dates: start: 20120416, end: 20120418
  6. VOGLIBOSE [Interacting]
     Indication: DIABETES MELLITUS
     Dosage: 0.2 MG, BID
     Route: 048
     Dates: start: 20090401
  7. LASIX [Concomitant]
     Dosage: 40 MG, QD
     Route: 048
  8. KINEDAK [Concomitant]
     Dosage: 50 MG, BID
     Route: 048
     Dates: start: 20090917
  9. DORNER [Concomitant]
     Dosage: 40  ?G, QD
     Route: 048

REACTIONS (3)
  - ALTERED STATE OF CONSCIOUSNESS [None]
  - DRUG INTERACTION [None]
  - HYPOGLYCAEMIA [None]
